FAERS Safety Report 19839432 (Version 1)
Quarter: 2021Q3

REPORT INFORMATION
  Report Type: Spontaneous
  Country: US (occurrence: US)
  Receive Date: 20210915
  Receipt Date: 20210915
  Transmission Date: 20211014
  Serious: Yes (Hospitalization, Disabling)
  Sender: FDA-Public Use
  Company Number: None

PATIENT
  Sex: Female

DRUGS (11)
  1. VITAMIN B [Concomitant]
     Active Substance: VITAMIN B
  2. ELOCON [Suspect]
     Active Substance: MOMETASONE FUROATE
     Indication: HYPERSENSITIVITY
     Dosage: ?          QUANTITY:60 GRAMS;?
     Route: 061
     Dates: start: 20160501, end: 20201125
  3. VITAMIN D [Concomitant]
     Active Substance: VITAMIN D NOS
  4. SUPPLEMENTS [Concomitant]
     Active Substance: UNSPECIFIED INGREDIENT
  5. ELOCON [Suspect]
     Active Substance: MOMETASONE FUROATE
     Indication: RASH
     Dosage: ?          QUANTITY:60 GRAMS;?
     Route: 061
     Dates: start: 20160501, end: 20201125
  6. VITAMIN C [Concomitant]
     Active Substance: ASCORBIC ACID
  7. DEADSEA SALT BATHS [Concomitant]
  8. CHINESE HERBAL MEDICINE [Concomitant]
     Active Substance: HERBALS
  9. ZINC SUPPLEMENTS [Concomitant]
  10. COLLAGEN SUPPLEMENTS [Concomitant]
  11. ELOMET [Suspect]
     Active Substance: MOMETASONE FUROATE

REACTIONS (26)
  - Wound [None]
  - Lymphadenopathy [None]
  - Hyperaesthesia [None]
  - Skin exfoliation [None]
  - Dry eye [None]
  - Eye irritation [None]
  - Insomnia [None]
  - Mental disorder [None]
  - Burning sensation [None]
  - Hypersensitivity [None]
  - Liver function test abnormal [None]
  - Loss of therapeutic response [None]
  - Dry skin [None]
  - Skin weeping [None]
  - Blood immunoglobulin E increased [None]
  - Rash [None]
  - Erythema [None]
  - Infection [None]
  - Skin laceration [None]
  - White blood cell count increased [None]
  - Blood albumin decreased [None]
  - Skin atrophy [None]
  - Steroid withdrawal syndrome [None]
  - Eosinophil count increased [None]
  - Skin wrinkling [None]
  - Eczema [None]

NARRATIVE: CASE EVENT DATE: 20201125
